FAERS Safety Report 9625016 (Version 2)
Quarter: 2013Q4

REPORT INFORMATION
  Report Type: Spontaneous
  Country: AR (occurrence: AR)
  Receive Date: 20131016
  Receipt Date: 20131030
  Transmission Date: 20140711
  Serious: Yes (Hospitalization, Other)
  Sender: FDA-Public Use
  Company Number: AR-AMGEN-ARGSP2013072342

PATIENT
  Age: 60 Year
  Sex: Female

DRUGS (4)
  1. ENBREL [Suspect]
     Indication: RHEUMATOID ARTHRITIS
     Dosage: 50 MG, WEEKLY
     Route: 065
     Dates: start: 20090808
  2. METHOTREXATE [Concomitant]
     Dosage: UNK
     Route: 048
     Dates: start: 2008
  3. FOLIC ACID [Concomitant]
     Dosage: UNK
     Route: 048
     Dates: start: 2008
  4. PREDNISONE [Concomitant]
     Dosage: UNK
     Route: 048
     Dates: start: 2008

REACTIONS (1)
  - Myocardial infarction [Recovered/Resolved]
